FAERS Safety Report 11020612 (Version 1)
Quarter: 2015Q2

REPORT INFORMATION
  Report Type: Spontaneous
  Country: US (occurrence: US)
  Receive Date: 20150413
  Receipt Date: 20150413
  Transmission Date: 20150821
  Serious: No
  Sender: FDA-Public Use
  Company Number: US-ASTRAZENECA-2015SE29349

PATIENT
  Sex: Female
  Weight: 68 kg

DRUGS (8)
  1. PRILOSEC [Suspect]
     Active Substance: OMEPRAZOLE MAGNESIUM
     Indication: HIATUS HERNIA
     Route: 048
  2. PRILOSEC [Suspect]
     Active Substance: OMEPRAZOLE MAGNESIUM
     Indication: GASTROOESOPHAGEAL REFLUX DISEASE
     Route: 048
  3. ASPIRIN. [Concomitant]
     Active Substance: ASPIRIN
  4. SYMBICORT [Suspect]
     Active Substance: BUDESONIDE\FORMOTEROL FUMARATE DIHYDRATE
     Indication: VIRAL INFECTION
     Dosage: 160/4.5 2 PUFFS BID
     Route: 055
  5. LOSARTAN WITH HCTZ [Concomitant]
     Indication: HYPERTENSION
  6. NORVASC [Concomitant]
     Active Substance: AMLODIPINE BESYLATE
     Indication: HYPERTENSION
  7. SINGULAIR [Concomitant]
     Active Substance: MONTELUKAST SODIUM
     Indication: MULTIPLE ALLERGIES
  8. SYMBICORT [Suspect]
     Active Substance: BUDESONIDE\FORMOTEROL FUMARATE DIHYDRATE
     Indication: VIRAL INFECTION
     Dosage: 80/4.5
     Route: 055

REACTIONS (8)
  - Hypertension [Unknown]
  - Oedema [Unknown]
  - Cough [Recovering/Resolving]
  - Viral upper respiratory tract infection [Unknown]
  - Off label use [Not Recovered/Not Resolved]
  - Bundle branch block left [Unknown]
  - Throat irritation [Unknown]
  - Blood potassium decreased [Unknown]
